FAERS Safety Report 9959423 (Version 1)
Quarter: 2014Q1

REPORT INFORMATION
  Report Type: Report from Study
  Country: US (occurrence: US)
  Receive Date: 20140305
  Receipt Date: 20140305
  Transmission Date: 20141002
  Serious: No
  Sender: FDA-Public Use
  Company Number: US-ABBVIE-13P-163-1106861-00

PATIENT
  Sex: Female

DRUGS (10)
  1. HUMIRA [Suspect]
     Indication: CROHN^S DISEASE
     Dates: start: 20130417, end: 20130417
  2. HUMIRA [Suspect]
     Dates: start: 20130517, end: 20130517
  3. HUMIRA [Suspect]
  4. DIGOXIN [Concomitant]
     Indication: ATRIAL FIBRILLATION
  5. HORMONE REPLACEMENT THERAPY [Concomitant]
     Indication: PRODUCT USED FOR UNKNOWN INDICATION
  6. CITALOPRAM [Concomitant]
     Indication: DEPRESSION
  7. ACID REFLUX MEDICATION [Concomitant]
     Indication: GASTROOESOPHAGEAL REFLUX DISEASE
  8. CETIRIZINE [Concomitant]
     Indication: HYPERSENSITIVITY
  9. CITRICAL D [Concomitant]
     Indication: PRODUCT USED FOR UNKNOWN INDICATION
  10. CHILDREN^S VITAMINS WITHOUT IRON [Concomitant]
     Indication: PRODUCT USED FOR UNKNOWN INDICATION

REACTIONS (7)
  - Irritable bowel syndrome [Recovered/Resolved]
  - Infection [Recovered/Resolved]
  - Oral herpes [Unknown]
  - Malaise [Unknown]
  - Blood iron decreased [Unknown]
  - Haemoglobin decreased [Unknown]
  - Gastrointestinal sounds abnormal [Unknown]
